FAERS Safety Report 4798141-2 (Version None)
Quarter: 2005Q4

REPORT INFORMATION
  Report Type: 
  Country: None (occurrence: None)
  Receive Date: 20051006
  Receipt Date: 20051006
  Transmission Date: 20060501
  Serious: No
  Sender: FDA-Public Use
  Company Number: None

PATIENT
  Sex: Male

DRUGS (6)
  1. HEPARIN [Suspect]
     Indication: THROMBOSIS PROPHYLAXIS
     Dosage: 5000 UNITS SC Q12 HOURS
     Route: 058
     Dates: start: 20040618, end: 20040619
  2. ONDANSETRON [Concomitant]
  3. PHENYTOIN [Concomitant]
  4. MIRTAZAPINE [Concomitant]
  5. RANITIDINE [Concomitant]
  6. METRONIDAZOLE [Concomitant]

REACTIONS (6)
  - GASTROINTESTINAL HAEMORRHAGE [None]
  - HAEMOLYTIC URAEMIC SYNDROME [None]
  - HEPARIN-INDUCED THROMBOCYTOPENIA [None]
  - THROMBOCYTOPENIA [None]
  - THROMBOCYTOPENIC PURPURA [None]
  - WOUND HAEMORRHAGE [None]
